FAERS Safety Report 17139345 (Version 1)
Quarter: 2019Q4

REPORT INFORMATION
  Report Type: Spontaneous
  Country: US (occurrence: US)
  Receive Date: 20191210
  Receipt Date: 20191210
  Transmission Date: 20200122
  Serious: Yes (Hospitalization)
  Sender: FDA-Public Use
  Company Number: None

PATIENT
  Age: 20 Year

DRUGS (12)
  1. PREDNISONE 2.5 MG TAB [Concomitant]
     Dates: start: 20190719
  2. CREON 36000UNIT [Concomitant]
     Dates: start: 20191209
  3. VITAMIN D 50000 UNIT [Concomitant]
     Dates: start: 20190510
  4. OMEPRAZOLE 40 MG CAP [Concomitant]
     Dates: start: 20190203
  5. PREDNISONE 10 MG TAB [Concomitant]
     Dates: start: 20191116
  6. PREDNISONE 5MG TAB [Concomitant]
     Active Substance: PREDNISONE
     Dates: start: 20191115
  7. PULMOZYME [Suspect]
     Active Substance: DORNASE ALFA
     Indication: CYSTIC FIBROSIS
     Route: 055
     Dates: start: 20150410
  8. PREVACID 15 MG CAP DR [Concomitant]
     Dates: start: 20110912
  9. BREO ELLIPTA INH 200-25 [Concomitant]
     Dates: start: 20191204
  10. ZITHROMAX 250 MG TAB [Concomitant]
     Dates: start: 20110912
  11. MONTEUKAST 10MG TAB [Concomitant]
     Dates: start: 20191204
  12. AZITHROMYCIN 500MG TAB [Concomitant]
     Active Substance: AZITHROMYCIN
     Dates: start: 20191018

REACTIONS (1)
  - Pulmonary function test decreased [None]

NARRATIVE: CASE EVENT DATE: 20191101
